FAERS Safety Report 7203744-1 (Version None)
Quarter: 2010Q4

REPORT INFORMATION
  Report Type: 
  Country: None (occurrence: None)
  Receive Date: 20101217
  Receipt Date: 20101201
  Transmission Date: 20110411
  Serious: Yes (Hospitalization)
  Sender: FDA-Public Use
  Company Number: 015146

PATIENT
  Sex: Female
  Weight: 38 kg

DRUGS (5)
  1. CIMZIA [Suspect]
     Indication: CROHN'S DISEASE
     Dosage: (400 MG 1X/2 WEEKS, EVERY 2-3 WEEKS SUBCUTANEOUS)
     Route: 058
     Dates: start: 20090701
  2. MULTI-VITAMINS [Concomitant]
  3. CALCIUM [Concomitant]
  4. ACCOMIN MULTIVITAMIN [Concomitant]
  5. IRON [Concomitant]

REACTIONS (12)
  - ARTHRITIS REACTIVE [None]
  - CHILLS [None]
  - CONDITION AGGRAVATED [None]
  - CROHN'S DISEASE [None]
  - DRUG EFFECT DECREASED [None]
  - DRUG INEFFECTIVE [None]
  - FATIGUE [None]
  - HAEMATOCHEZIA [None]
  - INITIAL INSOMNIA [None]
  - NASOPHARYNGITIS [None]
  - PYREXIA [None]
  - WEIGHT DECREASED [None]
